FAERS Safety Report 25168536 (Version 2)
Quarter: 2025Q2

REPORT INFORMATION
  Report Type: Spontaneous
  Country: US (occurrence: US)
  Receive Date: 20250407
  Receipt Date: 20250630
  Transmission Date: 20250717
  Serious: No
  Sender: FERRING
  Company Number: US-FERRINGPH-2025FE01183

PATIENT
  Age: 78 Year
  Sex: Female

DRUGS (1)
  1. ADSTILADRIN [Suspect]
     Active Substance: NADOFARAGENE FIRADENOVEC-VNCG
     Indication: Transitional cell carcinoma
     Route: 065
     Dates: start: 20250310

REACTIONS (3)
  - Expulsion of medication [Unknown]
  - Discomfort [Recovered/Resolved]
  - Bladder spasm [Unknown]

NARRATIVE: CASE EVENT DATE: 20250310
